FAERS Safety Report 14007063 (Version 1)
Quarter: 2017Q3

REPORT INFORMATION
  Report Type: Spontaneous
  Country: US (occurrence: US)
  Receive Date: 20170925
  Receipt Date: 20170925
  Transmission Date: 20171128
  Serious: Yes (Hospitalization, Other)
  Sender: FDA-Public Use
  Company Number: US-LUPIN PHARMACEUTICALS INC.-2017-03071

PATIENT
  Age: 21 Year
  Sex: Female

DRUGS (1)
  1. ARMODAFINIL. [Suspect]
     Active Substance: ARMODAFINIL
     Indication: HYPERSOMNIA
     Dosage: 150 MG, QD (EVERY MORNING)
     Route: 048

REACTIONS (1)
  - Stevens-Johnson syndrome [Not Recovered/Not Resolved]
